FAERS Safety Report 12591059 (Version 2)
Quarter: 2016Q3

REPORT INFORMATION
  Report Type: Spontaneous
  Country: US (occurrence: US)
  Receive Date: 20160726
  Receipt Date: 20160728
  Transmission Date: 20161109
  Serious: No
  Sender: FDA-Public Use
  Company Number: US-UNITED THERAPEUTICS-UNT-2015-015755

PATIENT
  Age: 56 Year
  Sex: Male
  Weight: 77.98 kg

DRUGS (1)
  1. REMODULIN [Suspect]
     Active Substance: TREPROSTINIL
     Indication: PULMONARY HYPERTENSION
     Dosage: 0.100 ?G/KG, CONTINUING
     Route: 058
     Dates: start: 20130123

REACTIONS (4)
  - Adverse event [Unknown]
  - Pain in jaw [Unknown]
  - Infusion site pain [Unknown]
  - Infusion site oedema [Not Recovered/Not Resolved]

NARRATIVE: CASE EVENT DATE: 201512
